FAERS Safety Report 7049201-7 (Version None)
Quarter: 2010Q4

REPORT INFORMATION
  Report Type: 
  Country: None (occurrence: None)
  Receive Date: 20101012
  Receipt Date: 20100611
  Transmission Date: 20110411
  Serious: Yes (Other)
  Sender: FDA-Public Use
  Company Number: 716167

PATIENT
  Age: 35 Year
  Sex: Male

DRUGS (3)
  1. ACYCLOVIR [Suspect]
     Indication: PROGRESSIVE MULTIFOCAL LEUKOENCEPHALOPATHY
  2. (METHYLPREDNILSOLONE) [Suspect]
     Indication: PROGRESSIVE MULTIFOCAL LEUKOENCEPHALOPATHY
  3. CEFTRIAXONE [Suspect]
     Indication: PROGRESSIVE MULTIFOCAL LEUKOENCEPHALOPATHY

REACTIONS (9)
  - APHASIA [None]
  - BLOOD IMMUNOGLOBULIN A DECREASED [None]
  - CD8 LYMPHOCYTES DECREASED [None]
  - EPILEPSY [None]
  - IMMUNE RECONSTITUTION SYNDROME [None]
  - JC VIRUS TEST POSITIVE [None]
  - MONOPARESIS [None]
  - NATURAL KILLER CELL COUNT DECREASED [None]
  - VISUAL IMPAIRMENT [None]
